FAERS Safety Report 9962015 (Version 1)
Quarter: 2014Q1

REPORT INFORMATION
  Report Type: Spontaneous
  Country: US (occurrence: None)
  Receive Date: 20140304
  Receipt Date: 20140304
  Transmission Date: 20141002
  Serious: Yes (Hospitalization)
  Sender: FDA-Public Use
  Company Number: None

PATIENT
  Age: 53 Year
  Sex: Male
  Weight: 58.5 kg

DRUGS (2)
  1. IFOSFAMIDE [Suspect]
     Indication: RHABDOMYOSARCOMA
     Route: 042
     Dates: start: 20140129, end: 20140203
  2. ETOPOSIDE [Suspect]
     Indication: RHABDOMYOSARCOMA
     Route: 042
     Dates: start: 20140129, end: 20140203

REACTIONS (8)
  - Pain in jaw [None]
  - Odynophagia [None]
  - Malnutrition [None]
  - Abdominal pain [None]
  - Febrile neutropenia [None]
  - Sinusitis [None]
  - Stomatitis [None]
  - Chest pain [None]
